FAERS Safety Report 21290300 (Version 4)
Quarter: 2022Q4

REPORT INFORMATION
  Report Type: Spontaneous
  Country: US (occurrence: US)
  Receive Date: 20220902
  Receipt Date: 20221021
  Transmission Date: 20230113
  Serious: Yes (Other)
  Sender: FDA-Public Use
  Company Number: US-PFIZER INC-PV202200035226

PATIENT
  Age: 64 Year
  Sex: Female

DRUGS (3)
  1. INLYTA [Suspect]
     Active Substance: AXITINIB
     Indication: Thrombocytopenia
     Dosage: 5 MG, 2X/DAY (TAKE 1 TABLET BY MOUTH TWICE DAILY)
     Route: 048
     Dates: start: 20220801, end: 202209
  2. INLYTA [Suspect]
     Active Substance: AXITINIB
     Dosage: 2 MG, DAILY
     Dates: start: 20220928
  3. HYDROCHLOROTHIAZIDE [Concomitant]
     Active Substance: HYDROCHLOROTHIAZIDE
     Dosage: UNK

REACTIONS (7)
  - Blood pressure systolic increased [Unknown]
  - Paraesthesia [Unknown]
  - Headache [Unknown]
  - Blood sodium decreased [Unknown]
  - Off label use [Unknown]
  - Dehydration [Unknown]
  - Dyspnoea [Unknown]

NARRATIVE: CASE EVENT DATE: 20220101
